FAERS Safety Report 16410054 (Version 1)
Quarter: 2019Q2

REPORT INFORMATION
  Report Type: Report from Study
  Country: CA (occurrence: CA)
  Receive Date: 20190610
  Receipt Date: 20190610
  Transmission Date: 20190711
  Serious: Yes (Other)
  Sender: FDA-Public Use
  Company Number: CA-JNJFOC-20190611335

PATIENT
  Age: 52 Year
  Sex: Female
  Weight: 65.3 kg

DRUGS (1)
  1. SIMPONI [Suspect]
     Active Substance: GOLIMUMAB
     Indication: COLITIS ULCERATIVE
     Route: 058
     Dates: start: 20140519, end: 20190604

REACTIONS (1)
  - Tooth abscess [Not Recovered/Not Resolved]

NARRATIVE: CASE EVENT DATE: 20190604
